FAERS Safety Report 5910683-2 (Version None)
Quarter: 2008Q4

REPORT INFORMATION
  Report Type: 
  Country: None (occurrence: None)
  Receive Date: 20081007
  Receipt Date: 20080926
  Transmission Date: 20090506
  Serious: Yes (Other)
  Sender: FDA-Public Use
  Company Number: US-ASTRAZENECA-2008AC02577

PATIENT
  Age: 34 Year
  Sex: Female
  Weight: 81.8 kg

DRUGS (2)
  1. FENTANYL [Suspect]
     Indication: EPIDURAL ANAESTHESIA
     Dosage: 2 UG/ML
     Route: 008
  2. BUPIVACAINE [Suspect]
     Indication: EPIDURAL ANAESTHESIA
     Route: 008

REACTIONS (1)
  - NEUROPATHY PERIPHERAL [None]
